FAERS Safety Report 9602189 (Version 2)
Quarter: 2013Q4

REPORT INFORMATION
  Report Type: Spontaneous
  Country: JP (occurrence: JP)
  Receive Date: 20131007
  Receipt Date: 20131007
  Transmission Date: 20140711
  Serious: Yes (Hospitalization)
  Sender: FDA-Public Use
  Company Number: JP-ELI_LILLY_AND_COMPANY-JP201308008512

PATIENT
  Age: 89 Year
  Sex: Female
  Weight: 34 kg

DRUGS (5)
  1. CYMBALTA [Suspect]
     Indication: DEPRESSION
     Dosage: 20 MG, QD
     Route: 048
     Dates: start: 20130719, end: 20130723
  2. MICARDIS [Concomitant]
     Indication: ESSENTIAL HYPERTENSION
     Dosage: UNK
     Route: 048
  3. AMLODIN [Concomitant]
     Indication: ESSENTIAL HYPERTENSION
     Dosage: UNK
     Route: 048
  4. GASTER D [Concomitant]
     Indication: GASTROOESOPHAGEAL REFLUX DISEASE
     Dosage: 10 MG, EACH MORNING
     Route: 048
     Dates: start: 20060126
  5. DETRUSITOL [Concomitant]
     Indication: HYPERTONIC BLADDER
     Dosage: 4 MG, EACH EVENING
     Route: 048
     Dates: start: 20130403

REACTIONS (3)
  - Laceration [Unknown]
  - Fall [Recovered/Resolved]
  - Inappropriate antidiuretic hormone secretion [Recovered/Resolved]
